FAERS Safety Report 7280087-1 (Version None)
Quarter: 2011Q1

REPORT INFORMATION
  Report Type: 
  Country: None (occurrence: None)
  Receive Date: 20110208
  Receipt Date: 20110202
  Transmission Date: 20110831
  Serious: Yes (Hospitalization)
  Sender: FDA-Public Use
  Company Number: AT-BRISTOL-MYERS SQUIBB COMPANY-15524143

PATIENT
  Age: 44 Year
  Sex: Female
  Weight: 55 kg

DRUGS (1)
  1. ABILIFY [Suspect]
     Indication: SCHIZOAFFECTIVE DISORDER
     Dosage: STARTED WITH 10MG ON 21DEC10,INCREASED TO 15MG ON 24DEC10,ALSO ON 28DEC10
     Route: 048
     Dates: start: 20101221, end: 20101229

REACTIONS (1)
  - NERVOUS SYSTEM DISORDER [None]
